FAERS Safety Report 6697172-5 (Version None)
Quarter: 2010Q2

REPORT INFORMATION
  Report Type: 
  Country: None (occurrence: None)
  Receive Date: 20100426
  Receipt Date: 20100416
  Transmission Date: 20101027
  Serious: Yes (Hospitalization)
  Sender: FDA-Public Use
  Company Number: US-PFIZER INC-2009287695

PATIENT
  Sex: Female
  Weight: 63.5 kg

DRUGS (18)
  1. CHANTIX [Suspect]
     Indication: SMOKING CESSATION THERAPY
     Dosage: 0.5 MG, 1X/DAY
     Route: 048
     Dates: start: 20080101
  2. CHANTIX [Suspect]
     Dosage: 1 MG, 2X/DAY
  3. CHANTIX [Suspect]
     Dosage: 0.5 MG, UNK
     Dates: start: 20091104
  4. TRAZODONE [Concomitant]
     Indication: DEPRESSION
     Dosage: 300 MG, 1X/DAY
     Route: 048
     Dates: end: 20091101
  5. XANAX [Concomitant]
     Dosage: 2 MG, AS NEEDED
     Route: 048
     Dates: end: 20091009
  6. CLONAZEPAM [Concomitant]
     Indication: SLEEP DISORDER
     Dosage: 30 MG, 1X/DAY
     Route: 048
  7. LEVOTHYROXINE [Concomitant]
     Indication: HYPOTHYROIDISM
     Dosage: 25 UG, 1X/DAY
     Route: 048
  8. KLONOPIN [Concomitant]
     Indication: PANIC ATTACK
     Dosage: 0.5 MG, AS NEEDED
     Route: 048
  9. SYMBYAX [Concomitant]
     Indication: DEPRESSION
     Dosage: 20 MG, UNK
     Route: 048
  10. DIAMOX SRC [Concomitant]
     Indication: OEDEMA
     Dosage: 500 MG, 2X/DAY
     Route: 048
  11. PAXIL [Concomitant]
     Indication: DEPRESSION
     Dosage: 25 MG, 1X/DAY
     Route: 048
  12. POTASSIUM CHLORIDE [Concomitant]
     Indication: OEDEMA
     Dosage: 8 MG EVERY OTHER DAY
     Route: 048
  13. HYDROMORPHONE HYDROCHLORIDE [Concomitant]
     Dosage: 20 MG EVERY TWELVE HOURS
     Route: 048
  14. HYDROMORPHONE [Concomitant]
     Indication: PAIN
     Dosage: 4 MG, AS NEEDED
     Route: 048
  15. NEURONTIN [Concomitant]
  16. PROMETHAZINE [Concomitant]
  17. PROTONIX [Concomitant]
  18. TEMAZEPAM [Concomitant]

REACTIONS (5)
  - DISORIENTATION [None]
  - DRUG EFFECT DECREASED [None]
  - HYPERSOMNIA [None]
  - IRRITABILITY [None]
  - NAUSEA [None]
